FAERS Safety Report 24438034 (Version 1)
Quarter: 2024Q4

REPORT INFORMATION
  Report Type: Spontaneous
  Country: US (occurrence: None)
  Receive Date: 20241014
  Receipt Date: 20241014
  Transmission Date: 20250115
  Serious: Yes (Other)
  Sender: Public
  Company Number: None

PATIENT
  Age: 68 Year
  Sex: Male

DRUGS (1)
  1. LENALIDOMIDE [Suspect]
     Active Substance: LENALIDOMIDE
     Indication: Plasma cell myeloma
     Dosage: OTHER FREQUENCY : QD FOR 21 DAYS ON THEN 7 DAYS OFF;?

REACTIONS (8)
  - Pyrexia [None]
  - Oropharyngeal pain [None]
  - Sinus disorder [None]
  - Cough [None]
  - White blood cell count decreased [None]
  - Diarrhoea [None]
  - Fatigue [None]
  - Gastrointestinal disorder [None]
